FAERS Safety Report 17386711 (Version 1)
Quarter: 2020Q1

REPORT INFORMATION
  Report Type: Spontaneous
  Country: US (occurrence: US)
  Receive Date: 20200206
  Receipt Date: 20200206
  Transmission Date: 20200409
  Serious: No
  Sender: FDA-Public Use
  Company Number: US-PFIZER INC-2014263665

PATIENT
  Age: 75 Year
  Sex: Female
  Weight: 62.6 kg

DRUGS (24)
  1. FISH OIL [Concomitant]
     Active Substance: FISH OIL
     Dosage: 1200 MG, 1X/DAY (1 AT NOON)
  2. GLUCOSAMINE CHONDROITIN [Concomitant]
     Active Substance: CHONDROITIN SULFATE (BOVINE)\GLUCOSAMINE HYDROCHLORIDE
     Dosage: 1500 MG, 2X/DAY
  3. SINGULAIR [Concomitant]
     Active Substance: MONTELUKAST SODIUM
     Indication: ASTHMA
     Dosage: 10 MG, 1X/DAY (1 TABLET AT BEDTIME)
  4. DIFLUCAN [Concomitant]
     Active Substance: FLUCONAZOLE
     Dosage: UNK
  5. MOMETASONE FUROATE. [Concomitant]
     Active Substance: MOMETASONE FUROATE
     Dosage: UNK
  6. LYRICA [Suspect]
     Active Substance: PREGABALIN
     Indication: RESTLESS LEGS SYNDROME
     Dosage: 75 MG, 3X/DAY
     Route: 048
  7. LYRICA [Suspect]
     Active Substance: PREGABALIN
     Dosage: 75 MG, 2X/DAY
     Route: 048
     Dates: start: 20171025
  8. CALCIUM CALTRATE + D [Concomitant]
     Dosage: UNK UNK, 2X/DAY [CALCIUM CARBONATE: 600 MG]/[COLECALCIFEROL: 400 IU]
  9. LIPITOR [Concomitant]
     Active Substance: ATORVASTATIN CALCIUM
     Indication: BLOOD CHOLESTEROL ABNORMAL
     Dosage: 20 MG, ALTERNATE DAY (1 EVERY OTHER DAY)
  10. SEROQUEL [Concomitant]
     Active Substance: QUETIAPINE FUMARATE
     Indication: SLEEP DISORDER
     Dosage: 75 MG, 1X/DAY (1 AT BEDTIME)
  11. SYMBICORT [Concomitant]
     Active Substance: BUDESONIDE\FORMOTEROL FUMARATE DIHYDRATE
     Indication: ASTHMA
     Dosage: 2 DF, 2X/DAY [BUDESONIDE: 80 MCG]/[FORMOTEROL FUMARATE: 4.5 MCG]
  12. FISH OIL [Concomitant]
     Active Substance: FISH OIL
     Dosage: 2400 MG, 2X/DAY (2 TWICE A DAY)
  13. ATIVAN [Concomitant]
     Active Substance: LORAZEPAM
     Dosage: 0.5 MG, AS NEEDED (ONLY AS NEEDED)
  14. DULERA [Concomitant]
     Active Substance: FORMOTEROL FUMARATE DIHYDRATE\MOMETASONE FUROATE
     Dosage: UNK
  15. NASONEX [Concomitant]
     Active Substance: MOMETASONE FUROATE
     Dosage: UNK
  16. RED YEAST RICE [Concomitant]
     Active Substance: DIETARY SUPPLEMENT
     Dosage: 600 MG, 2X/DAY
  17. LEVOFLOXACIN. [Concomitant]
     Active Substance: LEVOFLOXACIN
     Dosage: 500 MG, UNK
  18. PROAIR HFA [Concomitant]
     Active Substance: ALBUTEROL SULFATE
     Dosage: 40 UG, AS NEEDED (2 PUFFS EVERY 4 HOURS)
  19. LYRICA [Suspect]
     Active Substance: PREGABALIN
     Dosage: 75 MG, 2X/DAY
     Route: 048
  20. ACIDOPHILUS [Concomitant]
     Active Substance: LACTOBACILLUS ACIDOPHILUS
     Dosage: 175 MG, 1X/DAY ( 1 EACH MORNING)
  21. ASPIRIN. [Concomitant]
     Active Substance: ASPIRIN
     Dosage: 81 MG, ALTERNATE DAY (1 EVERY OTHER DAY)
  22. ZANTAC [Concomitant]
     Active Substance: RANITIDINE HYDROCHLORIDE
     Dosage: 300 MG, 2X/DAY (2 TABLETS 2 TIMES A DAY)
  23. ALBUTEROL. [Concomitant]
     Active Substance: ALBUTEROL
     Dosage: UNK
     Route: 055
  24. METHYLPREDNISOLONE. [Concomitant]
     Active Substance: METHYLPREDNISOLONE
     Dosage: 4 MG, UNK

REACTIONS (4)
  - Sinusitis [Recovering/Resolving]
  - Off label use [Unknown]
  - Product use in unapproved indication [Unknown]
  - Drug effective for unapproved indication [Unknown]

NARRATIVE: CASE EVENT DATE: 202001
